FAERS Safety Report 26196510 (Version 1)
Quarter: 2025Q4

REPORT INFORMATION
  Report Type: Report from Study
  Country: US (occurrence: None)
  Receive Date: 20251224
  Receipt Date: 20251224
  Transmission Date: 20260119
  Serious: Yes (Other)
  Sender: UCB
  Company Number: US-UCBSA-2025080558

PATIENT
  Age: 74 Year

DRUGS (3)
  1. CERTOLIZUMAB PEGOL [Suspect]
     Active Substance: CERTOLIZUMAB PEGOL
     Indication: Rheumatoid arthritis
     Dosage: 400 MILLIGRAM, EV 2 WEEKS(QOW), Q0,2,4 THEN Q4WKS
  2. ASPIRIN [Concomitant]
     Active Substance: ASPIRIN
     Indication: Arthralgia
     Dosage: 650 MILLIGRAM PRN
  3. ELIQUIS [Concomitant]
     Active Substance: APIXABAN
     Indication: Atrial flutter

REACTIONS (1)
  - Rheumatoid arthritis [Unknown]
